FAERS Safety Report 7683658-3 (Version None)
Quarter: 2011Q3

REPORT INFORMATION
  Report Type: 
  Country: None (occurrence: None)
  Receive Date: 20110815
  Receipt Date: 20110811
  Transmission Date: 20111222
  Serious: No
  Sender: FDA-Public Use
  Company Number: US-TEVA-296144USA

PATIENT
  Sex: Female
  Weight: 54.48 kg

DRUGS (1)
  1. PROAIR HFA [Suspect]
     Dosage: ONCE A DAY
     Route: 055
     Dates: start: 20110804, end: 20110804

REACTIONS (4)
  - EYE IRRITATION [None]
  - EYE PAIN [None]
  - OCULAR HYPERAEMIA [None]
  - EYE SWELLING [None]
